FAERS Safety Report 22260026 (Version 1)
Quarter: 2023Q2

REPORT INFORMATION
  Report Type: Spontaneous
  Country: US (occurrence: None)
  Receive Date: 20230427
  Receipt Date: 20230427
  Transmission Date: 20230722
  Serious: No
  Sender: FDA-Public Use
  Company Number: 2023A083764

PATIENT
  Sex: Female

DRUGS (1)
  1. SAPHNELO [Suspect]
     Active Substance: ANIFROLUMAB-FNIA
     Route: 042

REACTIONS (14)
  - Sinusitis [Not Recovered/Not Resolved]
  - Drug hypersensitivity [Unknown]
  - Illness [Unknown]
  - Vomiting [Unknown]
  - Feeding disorder [Unknown]
  - Pyrexia [Unknown]
  - Cough [Unknown]
  - Wheezing [Unknown]
  - Throat irritation [Not Recovered/Not Resolved]
  - Diarrhoea [Unknown]
  - Depressed mood [Unknown]
  - Weight increased [Not Recovered/Not Resolved]
  - Fatigue [Unknown]
  - Weight decreased [Unknown]
